FAERS Safety Report 7956225-1 (Version None)
Quarter: 2011Q4

REPORT INFORMATION
  Report Type: 
  Country: None (occurrence: None)
  Receive Date: 20111205
  Receipt Date: 20111130
  Transmission Date: 20120403
  Serious: Yes (Hospitalization)
  Sender: FDA-Public Use
  Company Number: GB-BRISTOL-MYERS SQUIBB COMPANY-15364409

PATIENT
  Age: 74 Year
  Sex: Male
  Weight: 80 kg

DRUGS (5)
  1. SPRYCEL [Suspect]
     Indication: CHRONIC MYELOID LEUKAEMIA
     Route: 048
     Dates: start: 20090804
  2. COLOFAC [Concomitant]
     Indication: ABDOMINAL PAIN
     Route: 048
     Dates: start: 20090301
  3. LANSOPRAZOLE [Concomitant]
     Indication: ANTACID THERAPY
     Route: 048
     Dates: start: 20091201
  4. OXAZEPAM [Concomitant]
     Indication: SEDATION
     Dosage: AT NIGHT.STARTED 40+YEARS.
     Route: 048
  5. PHENYTOIN [Concomitant]
     Indication: EPILEPSY
     Dosage: STARTED 40+YEARS
     Route: 048

REACTIONS (1)
  - TYPE 2 DIABETES MELLITUS [None]
